FAERS Safety Report 25078395 (Version 1)
Quarter: 2025Q1

REPORT INFORMATION
  Report Type: Spontaneous
  Country: US (occurrence: None)
  Receive Date: 20250313
  Receipt Date: 20250313
  Transmission Date: 20250409
  Serious: Yes (Death)
  Sender: FDA-CTU
  Company Number: None

PATIENT
  Sex: Female

DRUGS (6)
  1. PROLIA [Suspect]
     Active Substance: DENOSUMAB
     Indication: Senile osteoporosis
     Route: 058
     Dates: start: 20180831
  2. ARICEPT [Concomitant]
     Active Substance: DONEPEZIL HYDROCHLORIDE
  3. AUGMENTIN [Concomitant]
     Active Substance: AMOXICILLIN\CLAVULANATE POTASSIUM
  4. B12 [Concomitant]
  5. CALCIUM [Suspect]
     Active Substance: CALCIUM
  6. VITAMINS [Concomitant]
     Active Substance: VITAMINS

REACTIONS (1)
  - Death [None]
